FAERS Safety Report 5464292-2 (Version None)
Quarter: 2007Q3

REPORT INFORMATION
  Report Type: 
  Country: None (occurrence: None)
  Receive Date: 20070921
  Receipt Date: 20070914
  Transmission Date: 20080115
  Serious: Yes (Other)
  Sender: FDA-Public Use
  Company Number: B0487091A

PATIENT
  Age: 70 Year
  Sex: Female

DRUGS (1)
  1. ZOVIRAX [Suspect]
     Indication: DRUG USE FOR UNKNOWN INDICATION
     Dosage: 400MG ALTERNATE DAYS
     Route: 048
     Dates: start: 20070906, end: 20070908

REACTIONS (3)
  - DEPRESSED LEVEL OF CONSCIOUSNESS [None]
  - POLYURIA [None]
  - SOMNOLENCE [None]
